FAERS Safety Report 7064731-X (Version None)
Quarter: 2010Q4

REPORT INFORMATION
  Report Type: 
  Country: None (occurrence: None)
  Receive Date: 20101027
  Receipt Date: 19920625
  Transmission Date: 20110411
  Serious: Yes (Death)
  Sender: FDA-Public Use
  Company Number: US-ROCHE-20338

PATIENT
  Age: 93 Year
  Sex: Female

DRUGS (5)
  1. TICLID [Suspect]
     Route: 048
     Dates: start: 19920430, end: 19920604
  2. DYAZIDE [Concomitant]
  3. INDERAL [Concomitant]
  4. SYNTHROID [Concomitant]
  5. VITAMINS [Concomitant]

REACTIONS (4)
  - CEREBROVASCULAR ACCIDENT [None]
  - FATIGUE [None]
  - LETHARGY [None]
  - MALAISE [None]
